FAERS Safety Report 24279839 (Version 1)
Quarter: 2024Q3

REPORT INFORMATION
  Report Type: Spontaneous
  Country: CN (occurrence: CN)
  Receive Date: 20240904
  Receipt Date: 20240904
  Transmission Date: 20241016
  Serious: Yes (Congenital Anomaly)
  Sender: ROCHE
  Company Number: CN-ROCHE-10000072157

PATIENT
  Age: 64 Year
  Sex: Male
  Weight: 69 kg

DRUGS (3)
  1. TRASTUZUMAB [Suspect]
     Active Substance: TRASTUZUMAB
     Indication: Gastric cancer
     Dosage: ACCORDING TO THE DESCRIPTION, THE PATIENT RECEIVED 5 CYCLES OF CHEMOTHERAPY, AT 2024-02-27, 2024-03-
     Route: 042
     Dates: start: 20240227
  2. PEMBROLIZUMAB [Suspect]
     Active Substance: PEMBROLIZUMAB
     Indication: Gastric cancer
     Dosage: ACCORDING TO THE DESCRIPTION, THE PATIENT RECEIVED 5 CYCLES OF CHEMOTHERAPY, AT 2024-02-27, 2024-03-
     Route: 042
     Dates: start: 20240227
  3. CAPECITABINE\OXALIPLATIN [Suspect]
     Active Substance: CAPECITABINE\OXALIPLATIN
     Indication: Gastric cancer
     Dosage: ACCORDING TO THE DESCRIPTION, THE PATIENT RECEIVED 5 CYCLES OF CHEMOTHERAPY, AT 2024-02-27, 2024-03-
     Route: 042
     Dates: start: 20240227

REACTIONS (1)
  - Myelosuppression [Recovering/Resolving]

NARRATIVE: CASE EVENT DATE: 20240326
